FAERS Safety Report 21968807 (Version 1)
Quarter: 2023Q1

REPORT INFORMATION
  Report Type: Spontaneous
  Country: US (occurrence: US)
  Receive Date: 20230208
  Receipt Date: 20230208
  Transmission Date: 20230418
  Serious: Yes (Hospitalization, Other)
  Sender: FDA-Public Use
  Company Number: US-GILEAD-2023-0615709

PATIENT
  Sex: Female

DRUGS (2)
  1. TRODELVY [Suspect]
     Active Substance: SACITUZUMAB GOVITECAN-HZIY
     Indication: Product used for unknown indication
     Dosage: UNK
     Route: 065
  2. TRODELVY [Suspect]
     Active Substance: SACITUZUMAB GOVITECAN-HZIY
     Dosage: UNK; 50% OF STARTING DOSE; D1 EVERY 21 DAYS
     Route: 065

REACTIONS (8)
  - Febrile neutropenia [Recovered/Resolved]
  - Dermatitis [Recovered/Resolved]
  - Mucosal inflammation [Recovered/Resolved]
  - Bacteraemia [Recovered/Resolved]
  - Oesophageal candidiasis [Recovered/Resolved]
  - Thrombocytopenia [Recovered/Resolved]
  - Colitis [Recovered/Resolved]
  - Gastrointestinal haemorrhage [Recovered/Resolved]
